FAERS Safety Report 4352216-0 (Version None)
Quarter: 2004Q2

REPORT INFORMATION
  Report Type: 
  Country: None (occurrence: None)
  Receive Date: 20040504
  Receipt Date: 20040227
  Transmission Date: 20050107
  Serious: Yes (Death, Other)
  Sender: FDA-Public Use
  Company Number: PHHO2004BE02989

PATIENT
  Age: 69 Year
  Sex: Female
  Weight: 87 kg

DRUGS (11)
  1. FEMARA [Suspect]
     Indication: BREAST CANCER
     Dosage: 2.5 MG, QD
     Route: 048
     Dates: start: 20040209
  2. ZOLEDRONATE [Suspect]
     Indication: BREAST CANCER
     Dosage: 4 MG, ONCE/SINGLE
     Route: 042
     Dates: start: 20040213
  3. AUGMENTIN [Concomitant]
     Indication: BREAST INFECTION
     Dates: start: 20040202
  4. FELDENE [Concomitant]
     Indication: BREAST INFECTION
     Dates: start: 20040202
  5. EMCONCOR [Concomitant]
  6. HOMEOPATHIC PREPARATIONS [Concomitant]
  7. ENOXAPARIN SODIUM [Concomitant]
  8. CACIT [Concomitant]
     Indication: PROPHYLAXIS
  9. VITAMIN D3 [Concomitant]
  10. XANAX [Concomitant]
     Dates: start: 20040107
  11. RADIOTHERAPY [Concomitant]
     Indication: RADIOTHERAPY
     Dates: start: 20040218

REACTIONS (8)
  - CHILLS [None]
  - CONFUSIONAL STATE [None]
  - FATIGUE [None]
  - HYPERHIDROSIS [None]
  - LOSS OF CONSCIOUSNESS [None]
  - NAUSEA [None]
  - POST PROCEDURAL COMPLICATION [None]
  - SUDDEN DEATH [None]
